FAERS Safety Report 19694347 (Version 9)
Quarter: 2025Q4

REPORT INFORMATION
  Report Type: Spontaneous
  Country: EU (occurrence: EU)
  Receive Date: 20210813
  Receipt Date: 20251127
  Transmission Date: 20260117
  Serious: Yes (Death, Hospitalization, Other)
  Sender: CELLTRION
  Company Number: EU-CELLTRION INC.-2021DE010969

PATIENT

DRUGS (85)
  1. INFLIXIMAB [Suspect]
     Active Substance: INFLIXIMAB
     Indication: Dry eye
     Dosage: 425 MG, TWICE WEEKLY (D112)/850 MILLIGRAM, QW
     Route: 042
  2. INFLIXIMAB [Suspect]
     Active Substance: INFLIXIMAB
     Indication: Dermatitis
     Dosage: 425 MG, EVERY 2 WEEKS/425 MG, TWICE WEEKLY (D112)
     Route: 042
  3. INFLIXIMAB [Suspect]
     Active Substance: INFLIXIMAB
     Indication: Stomatitis
     Dosage: 850 MILLIGRAM, QW
     Route: 042
  4. INFLIXIMAB [Suspect]
     Active Substance: INFLIXIMAB
     Indication: Immunosuppressant drug therapy
     Dosage: UNK
  5. INFLIXIMAB [Suspect]
     Active Substance: INFLIXIMAB
     Indication: Dry eye
     Dosage: UNK
  6. INFLIXIMAB [Suspect]
     Active Substance: INFLIXIMAB
     Dosage: UNK
  7. RITUXIMAB [Suspect]
     Active Substance: RITUXIMAB
     Indication: Follicular lymphoma stage IV
     Dosage: UNK UNK, UNKNOWN FREQ.
     Route: 065
     Dates: start: 2016
  8. RITUXIMAB [Suspect]
     Active Substance: RITUXIMAB
     Indication: Follicular lymphoma
     Dosage: UNK
     Route: 065
     Dates: start: 2016
  9. RITUXIMAB [Suspect]
     Active Substance: RITUXIMAB
     Indication: Lymphoma
  10. BENDAMUSTINE HYDROCHLORIDE [Suspect]
     Active Substance: BENDAMUSTINE HYDROCHLORIDE
     Indication: Follicular lymphoma stage IV
     Dosage: UNK, CYCLICAL
     Route: 042
     Dates: start: 2013
  11. BENDAMUSTINE HYDROCHLORIDE [Suspect]
     Active Substance: BENDAMUSTINE HYDROCHLORIDE
     Indication: Lymphoma
     Dosage: UNK UNK, CYCLIC
     Route: 042
     Dates: start: 2016
  12. BENDAMUSTINE HYDROCHLORIDE [Suspect]
     Active Substance: BENDAMUSTINE HYDROCHLORIDE
     Dosage: UNK, CYCLICAL
     Route: 042
     Dates: start: 2013
  13. BENDAMUSTINE HYDROCHLORIDE [Suspect]
     Active Substance: BENDAMUSTINE HYDROCHLORIDE
     Dosage: UNK, CYCLICAL
     Route: 042
     Dates: start: 2016
  14. ANAKINRA [Suspect]
     Active Substance: ANAKINRA
     Indication: Dry eye
     Dosage: 100 MILLIGRAM, QD
     Route: 058
  15. ANAKINRA [Suspect]
     Active Substance: ANAKINRA
     Indication: Stomatitis
     Dosage: 100 MILLIGRAM DAILY;
     Route: 058
  16. ANAKINRA [Suspect]
     Active Substance: ANAKINRA
     Indication: Dermatitis
     Dosage: 100 MILLIGRAM, QD
     Route: 058
  17. ANAKINRA [Suspect]
     Active Substance: ANAKINRA
     Indication: Immunosuppressant drug therapy
     Dosage: UNK
  18. ANAKINRA [Suspect]
     Active Substance: ANAKINRA
     Indication: Dry eye
     Dosage: UNK
  19. ANAKINRA [Suspect]
     Active Substance: ANAKINRA
     Indication: Dry eye
     Dosage: UNK
  20. TACROLIMUS [Suspect]
     Active Substance: TACROLIMUS
     Indication: Dry eye
     Dosage: 1 MG, ONCE DAILY (D164)
     Route: 048
  21. TACROLIMUS [Suspect]
     Active Substance: TACROLIMUS
     Indication: Stomatitis
     Dosage: 1 MILLIGRAM DAILY; 4-6 UG/L
     Route: 048
  22. TACROLIMUS [Suspect]
     Active Substance: TACROLIMUS
     Indication: Dermatitis
  23. TACROLIMUS [Suspect]
     Active Substance: TACROLIMUS
     Indication: Stomatitis
  24. TACROLIMUS [Suspect]
     Active Substance: TACROLIMUS
     Indication: Immunosuppressant drug therapy
  25. PREDNISOLONE [Suspect]
     Active Substance: PREDNISOLONE
     Indication: Dry eye
     Dosage: 10 MG, ONCE DAILY (D77)
     Route: 042
  26. PREDNISOLONE [Suspect]
     Active Substance: PREDNISOLONE
     Indication: Stomatitis
     Dosage: 100 MG, ONCE DAILY (D78)
     Route: 042
  27. PREDNISOLONE [Suspect]
     Active Substance: PREDNISOLONE
     Indication: Dermatitis
     Dosage: 100 MG, ONCE DAILY (D84)
     Route: 048
  28. PREDNISOLONE [Suspect]
     Active Substance: PREDNISOLONE
     Indication: Immunosuppressant drug therapy
     Dosage: 20 MG, ONCE DAILY (D86-100)
     Route: 048
  29. PREDNISOLONE [Suspect]
     Active Substance: PREDNISOLONE
     Indication: Stomatitis
     Dosage: SINGLE DOSE 180MG (D106)/180 MG, TOTAL DOSE (D106)
     Route: 042
  30. PREDNISOLONE [Suspect]
     Active Substance: PREDNISOLONE
     Indication: Dry eye
     Dosage: 100 MG, ONCE DAILY (D107)
     Route: 042
  31. PREDNISOLONE [Suspect]
     Active Substance: PREDNISOLONE
     Dosage: TAPERED DOWN FROM 90 TO 40MG/D (D118-152)
     Route: 065
  32. PREDNISOLONE [Suspect]
     Active Substance: PREDNISOLONE
     Dosage: 30 MG, ONCE DAILY (D159)
     Route: 065
  33. PREDNISOLONE [Suspect]
     Active Substance: PREDNISOLONE
     Dosage: 50 MG, ONCE DAILY (D161)
     Route: 065
  34. PREDNISOLONE [Suspect]
     Active Substance: PREDNISOLONE
     Dosage: 100 MILLIGRAM, QD
     Route: 065
  35. PREDNISOLONE [Suspect]
     Active Substance: PREDNISOLONE
     Dosage: TAPERED DOWN FROM 80 TO 70MG/D (D173-179)
     Route: 065
  36. PREDNISOLONE [Suspect]
     Active Substance: PREDNISOLONE
     Dosage: TAPERED DOWN FROM 60 TO 5MG/D (D186-239)
     Route: 065
  37. PREDNISOLONE [Suspect]
     Active Substance: PREDNISOLONE
     Dosage: 60 MG DAILY/60 MG, ONCE DAILY
     Route: 065
  38. PREDNISOLONE [Suspect]
     Active Substance: PREDNISOLONE
     Dosage: 90 MG DAILY/90 MG, ONCE DAILY
     Route: 065
  39. PREDNISOLONE [Suspect]
     Active Substance: PREDNISOLONE
     Dosage: 80 MG DAILY/80 MG, ONCE DAILY
     Route: 065
  40. PREDNISOLONE [Suspect]
     Active Substance: PREDNISOLONE
     Dosage: 100 MILLIGRAM DAILY;
     Route: 042
  41. PREDNISOLONE [Suspect]
     Active Substance: PREDNISOLONE
     Dosage: 100 MILLIGRAM DAILY;
     Route: 048
  42. PREDNISOLONE [Suspect]
     Active Substance: PREDNISOLONE
     Dosage: 70 MG, ONCE DAILY (D173-179)
     Route: 065
  43. PREDNISOLONE [Suspect]
     Active Substance: PREDNISOLONE
     Dosage: 40 MG, ONCE DAILY (D118-152)
     Route: 065
  44. PREDNISOLONE [Suspect]
     Active Substance: PREDNISOLONE
     Dosage: 100 MG, ONCE DAILY (D84) (D164)(78) (D106) (D107)
     Route: 042
  45. PREDNISOLONE [Suspect]
     Active Substance: PREDNISOLONE
     Dosage: 5 MG, ONCE DAILY (D186-239)
     Route: 065
  46. PREDNISOLONE [Suspect]
     Active Substance: PREDNISOLONE
     Dosage: 180 MG (DOSAGE TEXT: 180 MG, TOTAL DOSE (D106))
     Route: 042
  47. PREDNISOLONE [Suspect]
     Active Substance: PREDNISOLONE
     Dosage: 100 MILLIGRAM, QD
     Route: 065
  48. PREDNISOLONE [Suspect]
     Active Substance: PREDNISOLONE
     Dosage: 100 MILLIGRAM, QD
     Route: 048
  49. PREDNISOLONE [Suspect]
     Active Substance: PREDNISOLONE
     Dosage: 100 MILLIGRAM, QD
     Route: 042
  50. PREDNISOLONE [Suspect]
     Active Substance: PREDNISOLONE
     Dosage: 180 MILLIGRAM
     Route: 042
  51. PREDNISOLONE [Suspect]
     Active Substance: PREDNISOLONE
     Dosage: 60 MILLIGRAM, QD
     Route: 065
  52. PREDNISOLONE [Suspect]
     Active Substance: PREDNISOLONE
     Dosage: 5 MILLIGRAM, QD
     Route: 065
  53. PREDNISOLONE [Suspect]
     Active Substance: PREDNISOLONE
     Dosage: 100 MILLIGRAM, QD
     Route: 042
  54. PREDNISOLONE [Suspect]
     Active Substance: PREDNISOLONE
     Dosage: 50 MILLIGRAM, QD
     Route: 065
  55. PREDNISOLONE [Suspect]
     Active Substance: PREDNISOLONE
     Dosage: 30 MILLIGRAM, QD
     Route: 065
  56. PREDNISOLONE [Suspect]
     Active Substance: PREDNISOLONE
     Dosage: 40 MILLIGRAM, QD
     Route: 065
  57. PREDNISOLONE [Suspect]
     Active Substance: PREDNISOLONE
     Dosage: 70 MILLIGRAM, QD
     Route: 065
  58. PREDNISOLONE [Suspect]
     Active Substance: PREDNISOLONE
     Dosage: 90 MILLIGRAM, QD
     Route: 065
  59. PREDNISOLONE [Suspect]
     Active Substance: PREDNISOLONE
     Dosage: 20 MILLIGRAM, QD
     Route: 048
  60. PREDNISOLONE [Suspect]
     Active Substance: PREDNISOLONE
     Dosage: 10 MILLIGRAM, QD
     Route: 042
  61. PREDNISOLONE [Suspect]
     Active Substance: PREDNISOLONE
     Dosage: 80 MILLIGRAM, QD
     Route: 065
  62. CYCLOSPORINE [Suspect]
     Active Substance: CYCLOSPORINE
     Indication: Dry eye
     Dosage: UNK UNK, UNKNOWN FREQ.
     Route: 065
  63. CYCLOSPORINE [Suspect]
     Active Substance: CYCLOSPORINE
     Indication: Stomatitis
     Dosage: UNK
     Route: 065
  64. CYCLOSPORINE [Suspect]
     Active Substance: CYCLOSPORINE
     Indication: Dermatitis
     Dosage: UNK
     Route: 065
  65. CYCLOSPORINE [Suspect]
     Active Substance: CYCLOSPORINE
     Indication: Immunosuppressant drug therapy
     Dosage: UNK
  66. CYCLOSPORINE [Suspect]
     Active Substance: CYCLOSPORINE
     Indication: Stomatitis
     Dosage: UNK
  67. CYCLOSPORINE [Suspect]
     Active Substance: CYCLOSPORINE
     Indication: Dry eye
     Dosage: UNK
  68. CYCLOSPORINE [Suspect]
     Active Substance: CYCLOSPORINE
     Dosage: UNK
  69. TACROLIMUS [Suspect]
     Active Substance: TACROLIMUS
     Indication: Follicular lymphoma stage IV
     Dosage: 1 MILLIGRAM, QD (ADDITIONAL INFORMATION ON DRUG: BRAND NAME UNKNOWN. DRUG TO BE VERIFIED FOR BRAND)
     Route: 048
  70. TACROLIMUS [Suspect]
     Active Substance: TACROLIMUS
     Indication: Off label use
  71. TACROLIMUS [Suspect]
     Active Substance: TACROLIMUS
     Indication: Immunosuppressant drug therapy
     Dosage: 1 MILLIGRAM DAILY; 4-6 UG/L
     Route: 048
  72. OBINUTUZUMAB [Suspect]
     Active Substance: OBINUTUZUMAB
     Indication: Follicular lymphoma stage IV
     Dosage: 1000 MILLIGRAM, CYCLICAL
     Route: 065
     Dates: start: 2017
  73. OBINUTUZUMAB [Suspect]
     Active Substance: OBINUTUZUMAB
     Indication: Follicular lymphoma
     Dosage: 1000 MG, CYCLIC (ON DAY DAYS 1, 8 AND 15 OF CYCLE 1 AND DAY 1 OF CYCLE 2-CYCLE 6)
     Route: 065
     Dates: start: 2017
  74. OBINUTUZUMAB [Suspect]
     Active Substance: OBINUTUZUMAB
     Indication: Lymphoma
     Dosage: 1000 MILLIGRAM, CYCLICAL
     Route: 065
     Dates: start: 2017
  75. POLATUZUMAB VEDOTIN [Suspect]
     Active Substance: POLATUZUMAB VEDOTIN
     Indication: Follicular lymphoma stage IV
     Dosage: 1.8 MG/KG, CYCLIC (D1 OF C1-6) (EVERY 1 CYCLE)
     Route: 065
     Dates: start: 2017
  76. POLATUZUMAB VEDOTIN [Suspect]
     Active Substance: POLATUZUMAB VEDOTIN
     Indication: Follicular lymphoma
     Dosage: 1.8 MILLIGRAM/KILOGRAM, CYCLICAL
     Route: 065
     Dates: start: 2017
  77. POLATUZUMAB VEDOTIN [Suspect]
     Active Substance: POLATUZUMAB VEDOTIN
     Indication: Lymphoma
  78. RITUXIMAB [Suspect]
     Active Substance: RITUXIMAB
     Indication: Follicular lymphoma stage IV
     Dosage: UNK UNK, UNKNOWN FREQ.
     Route: 065
     Dates: start: 2013, end: 2015
  79. RITUXIMAB [Suspect]
     Active Substance: RITUXIMAB
     Indication: Lymphoma
     Dosage: UNK UNK, UNKNOWN FREQ.
     Route: 065
     Dates: start: 2013, end: 2015
  80. ATEZOLIZUMAB [Concomitant]
     Active Substance: ATEZOLIZUMAB
     Indication: Follicular lymphoma stage IV
     Dosage: 1200 MG, CYCLIC  (D1 OF C2-6)
     Route: 065
     Dates: start: 2017
  81. ATEZOLIZUMAB [Concomitant]
     Active Substance: ATEZOLIZUMAB
     Indication: Lymphoma
     Dosage: 1200 MG, CYCLIC (ON DAY 1 OF CYCLE 2 TO CYCLE 6)
     Route: 065
     Dates: start: 2017
  82. ATEZOLIZUMAB [Concomitant]
     Active Substance: ATEZOLIZUMAB
     Dosage: 1200 MILLIGRAM
     Route: 065
     Dates: start: 2017
  83. VENETOCLAX [Concomitant]
     Active Substance: VENETOCLAX
     Indication: Follicular lymphoma stage IV
     Dosage: UNK UNK, UNKNOWN FREQ
     Route: 065
     Dates: start: 2016
  84. VENETOCLAX [Concomitant]
     Active Substance: VENETOCLAX
     Indication: Lymphoma
     Dosage: UNK
     Route: 065
     Dates: start: 2016
  85. BENDAMUSTINE [Concomitant]
     Active Substance: BENDAMUSTINE
     Indication: Follicular lymphoma
     Dosage: UNK
     Route: 065
     Dates: start: 2013

REACTIONS (17)
  - Death [Fatal]
  - Dermatitis [Unknown]
  - Dry eye [Unknown]
  - Rebound effect [Unknown]
  - Stomatitis [Unknown]
  - Immune system disorder [Unknown]
  - Bacteraemia [Recovered/Resolved]
  - Bronchopulmonary aspergillosis [Recovered/Resolved]
  - Oral fungal infection [Recovered/Resolved]
  - Erysipelas [Recovered/Resolved]
  - Viral infection [Recovered/Resolved]
  - Opportunistic infection [Unknown]
  - Oral fungal infection [Unknown]
  - Product use in unapproved indication [Unknown]
  - Product use in unapproved indication [Unknown]
  - Intentional product use issue [Unknown]
  - Off label use [Recovered/Resolved]
